FAERS Safety Report 22119512 (Version 1)
Quarter: 2023Q1

REPORT INFORMATION
  Report Type: Spontaneous
  Country: US (occurrence: US)
  Receive Date: 20230321
  Receipt Date: 20230321
  Transmission Date: 20230417
  Serious: No
  Sender: FDA-Public Use
  Company Number: US-IMP-2022000007

PATIENT
  Age: 10 Year

DRUGS (7)
  1. LUXTURNA [Suspect]
     Active Substance: VORETIGENE NEPARVOVEC-RZYL
     Indication: Leber^s congenital amaurosis
     Dosage: UNK, ONCE/SINGLE (LEFT EYE)
     Route: 050
     Dates: start: 20210223, end: 20210223
  2. LUXTURNA [Suspect]
     Active Substance: VORETIGENE NEPARVOVEC-RZYL
     Dosage: UNK, ONCE/SINGLE (RIGHT EYE)
     Route: 050
     Dates: start: 20210316, end: 20210316
  3. MAXITROL [Suspect]
     Active Substance: DEXAMETHASONE\NEOMYCIN SULFATE\POLYMYXIN B SULFATE
     Indication: Product used for unknown indication
     Dosage: 27 MG QID (RIGHT EYE)
     Route: 047
     Dates: start: 20210317, end: 20210420
  4. MAXITROL [Suspect]
     Active Substance: DEXAMETHASONE\NEOMYCIN SULFATE\POLYMYXIN B SULFATE
     Dosage: 1 MG QD (RIGHT EYE) (TAPER DOWN)
     Route: 047
     Dates: start: 20210324, end: 20210427
  5. PREDNISONE [Suspect]
     Active Substance: PREDNISONE
     Indication: Product used for unknown indication
     Dosage: 27 MG
     Route: 048
     Dates: start: 20210313
  6. PREDNISONE [Suspect]
     Active Substance: PREDNISONE
     Dosage: 1 MG (TAPER DOWN)
     Route: 048
     Dates: end: 20210405
  7. FLUOROMETHOLONE [Suspect]
     Active Substance: FLUOROMETHOLONE
     Indication: Product used for unknown indication
     Dosage: EVERY 2 DAYS
     Route: 065
     Dates: end: 20210521

REACTIONS (4)
  - Eye inflammation [Recovered/Resolved]
  - Eye inflammation [Recovered/Resolved]
  - Intraocular pressure increased [Recovered/Resolved]
  - Intraocular pressure increased [Recovered/Resolved]

NARRATIVE: CASE EVENT DATE: 20210421
